FAERS Safety Report 5339531-9 (Version None)
Quarter: 2007Q2

REPORT INFORMATION
  Report Type: 
  Country: None (occurrence: None)
  Receive Date: 20070404
  Receipt Date: 20060209
  Transmission Date: 20071010
  Serious: Yes (Other)
  Sender: FDA-Public Use
  Company Number: 2006005944

PATIENT
  Sex: Female

DRUGS (4)
  1. GEODON [Suspect]
     Indication: ILL-DEFINED DISORDER
  2. DEPAKOTE [Concomitant]
  3. RISPERDAL [Concomitant]
  4. PROLIXIN [Concomitant]

REACTIONS (23)
  - ASTHENIA [None]
  - CARDIAC DISORDER [None]
  - COUGH [None]
  - DYSPHAGIA [None]
  - HYPERTENSION [None]
  - HYPOAESTHESIA [None]
  - HYPOAESTHESIA FACIAL [None]
  - INSOMNIA [None]
  - LIP SWELLING [None]
  - MUSCULOSKELETAL PAIN [None]
  - NERVOUS SYSTEM DISORDER [None]
  - PAIN IN EXTREMITY [None]
  - PRURITUS [None]
  - RASH [None]
  - REPRODUCTIVE TRACT DISORDER [None]
  - RHINORRHOEA [None]
  - SOMNOLENCE [None]
  - SWELLING FACE [None]
  - TENDONITIS [None]
  - TORSADE DE POINTES [None]
  - TREMOR [None]
  - UNEVALUABLE EVENT [None]
  - VISUAL DISTURBANCE [None]
